FAERS Safety Report 9443901 (Version 1)
Quarter: 2013Q3

REPORT INFORMATION
  Report Type: Spontaneous
  Country: AU (occurrence: AU)
  Receive Date: 20130807
  Receipt Date: 20130807
  Transmission Date: 20140515
  Serious: Yes (Other)
  Sender: FDA-Public Use
  Company Number: AU-ROCHE-1258151

PATIENT
  Age: 71 Year
  Sex: Male
  Weight: 82 kg

DRUGS (7)
  1. CEFTRIAXONE [Suspect]
     Indication: PRODUCT USED FOR UNKNOWN INDICATION
     Route: 042
     Dates: start: 20130507
  2. AZITHROMYCIN [Suspect]
     Indication: PRODUCT USED FOR UNKNOWN INDICATION
     Route: 042
     Dates: start: 20130507
  3. ATORVASTATIN [Concomitant]
     Route: 048
     Dates: start: 20130506
  4. FOSAMAX PLUS [Concomitant]
     Route: 065
     Dates: start: 20130506
  5. LERCANIDIPINE HYDROCHLORIDE [Concomitant]
     Route: 048
     Dates: start: 20130506
  6. PARACETAMOL [Concomitant]
     Route: 048
     Dates: start: 20130506
  7. MOXIFLOXACIN [Concomitant]

REACTIONS (3)
  - Pruritus [Recovered/Resolved]
  - Rash [Recovered/Resolved]
  - Swelling [Recovered/Resolved]
